FAERS Safety Report 14122237 (Version 1)
Quarter: 2017Q4

REPORT INFORMATION
  Report Type: Spontaneous
  Country: US (occurrence: US)
  Receive Date: 20171024
  Receipt Date: 20171024
  Transmission Date: 20180321
  Serious: No
  Sender: FDA-Public Use
  Company Number: US-BAYER-2017-195041

PATIENT
  Age: 84 Year
  Sex: Female
  Weight: 56.96 kg

DRUGS (6)
  1. MIRALAX [Suspect]
     Active Substance: POLYETHYLENE GLYCOL 3350
     Indication: CONSTIPATION PROPHYLAXIS
     Dosage: 0.5 DF, PRN
     Route: 048
     Dates: start: 201710
  2. FISH OIL [Concomitant]
     Active Substance: FISH OIL
  3. MIRALAX [Suspect]
     Active Substance: POLYETHYLENE GLYCOL 3350
     Indication: CONSTIPATION PROPHYLAXIS
     Dosage: 1 DF, QD (CAPFUL)
     Route: 048
     Dates: start: 201609
  4. VITAMIN D [Concomitant]
     Active Substance: CHOLECALCIFEROL
  5. CENTRUM SILVER [Concomitant]
     Active Substance: MINERALS\VITAMINS
  6. CRANBERRY. [Concomitant]
     Active Substance: CRANBERRY

REACTIONS (7)
  - Inappropriate prescribing [Unknown]
  - Drug administration error [Unknown]
  - Inappropriate prescribing [Unknown]
  - Incorrect dose administered [Unknown]
  - Product use issue [Unknown]
  - Off label use [Unknown]
  - Product use issue [Unknown]

NARRATIVE: CASE EVENT DATE: 201609
